FAERS Safety Report 7024611-2 (Version None)
Quarter: 2010Q4

REPORT INFORMATION
  Report Type: 
  Country: None (occurrence: None)
  Receive Date: 20101001
  Receipt Date: 20100923
  Transmission Date: 20110411
  Serious: Yes (Other)
  Sender: FDA-Public Use
  Company Number: RS-JNJFOC-20100510044

PATIENT
  Sex: Male

DRUGS (6)
  1. CONCERTA [Suspect]
     Indication: ATTENTION DEFICIT/HYPERACTIVITY DISORDER
     Dosage: ONCE IN MORNING
     Route: 048
  2. CONCERTA [Suspect]
     Dosage: ONCE IN MORNING
     Route: 048
  3. TEGRETOL [Concomitant]
     Indication: EPILEPSY
     Route: 065
  4. RIVOTRIL [Concomitant]
     Indication: EPILEPSY
     Route: 065
  5. VALPROIC ACID [Concomitant]
     Indication: EPILEPSY
     Route: 065
  6. TOPAMAX [Concomitant]
     Indication: EPILEPSY

REACTIONS (5)
  - ABASIA [None]
  - DECREASED APPETITE [None]
  - DEPRESSED LEVEL OF CONSCIOUSNESS [None]
  - MALAISE [None]
  - SOCIAL AVOIDANT BEHAVIOUR [None]
